FAERS Safety Report 14475152 (Version 1)
Quarter: 2018Q1

REPORT INFORMATION
  Report Type: Spontaneous
  Country: US (occurrence: US)
  Receive Date: 20180201
  Receipt Date: 20180201
  Transmission Date: 20180509
  Serious: No
  Sender: FDA-Public Use
  Company Number: US-BEH-2018087423

PATIENT
  Age: 61 Year
  Sex: Female

DRUGS (2)
  1. HIZENTRA [Suspect]
     Active Substance: HUMAN IMMUNOGLOBULIN G
     Dosage: 10 G, EVERY 10 DAYS
     Route: 058
     Dates: start: 2010
  2. HIZENTRA [Suspect]
     Active Substance: HUMAN IMMUNOGLOBULIN G
     Indication: IMMUNODEFICIENCY COMMON VARIABLE
     Dosage: UNK
     Route: 058
     Dates: start: 20180110, end: 20180110

REACTIONS (4)
  - Administration site nodule [Not Recovered/Not Resolved]
  - Administration site bruise [Not Recovered/Not Resolved]
  - Infusion site vesicles [Recovered/Resolved]
  - Administration site erythema [Not Recovered/Not Resolved]

NARRATIVE: CASE EVENT DATE: 20180110
